FAERS Safety Report 6832306-0 (Version None)
Quarter: 2010Q3

REPORT INFORMATION
  Report Type: 
  Country: None (occurrence: None)
  Receive Date: 20100712
  Receipt Date: 20100621
  Transmission Date: 20110219
  Serious: No
  Sender: FDA-Public Use
  Company Number: US-BAYER-201026280NA

PATIENT
  Age: 64 Year
  Sex: Female
  Weight: 93 kg

DRUGS (4)
  1. ULTRAVIST 300 [Suspect]
     Indication: COMPUTERISED TOMOGRAM ABDOMEN
     Dosage: TOTAL DAILY DOSE: 139 ML
     Route: 042
     Dates: start: 20100610, end: 20100610
  2. HYZAAR [Concomitant]
  3. ZOLOFT [Concomitant]
  4. PREVACID [Concomitant]

REACTIONS (3)
  - NAUSEA [None]
  - RASH [None]
  - VOMITING [None]
